FAERS Safety Report 9185748 (Version 1)
Quarter: 2013Q1

REPORT INFORMATION
  Report Type: Spontaneous
  Country: GB (occurrence: None)
  Receive Date: 20130321
  Receipt Date: 20130321
  Transmission Date: 20140127
  Serious: Yes (Disabling)
  Sender: FDA-Public Use
  Company Number: 2013SUN00329

PATIENT
  Age: 51 Year
  Sex: Female

DRUGS (4)
  1. LETROZOLE [Suspect]
     Indication: PRODUCT USED FOR UNKNOWN INDICATION
     Route: 048
     Dates: start: 20121217
  2. HERCEPTIN (TRASTUZUMAB) [Suspect]
     Indication: BREAST CANCER
     Route: 042
     Dates: start: 20121217
  3. CHLORPHENIRAMINE (CHLORPHENIRAMINE) [Concomitant]
  4. PREDNISONE (PREDNISONE) [Concomitant]

REACTIONS (3)
  - Condition aggravated [None]
  - Arthralgia [None]
  - Bone disorder [None]
